FAERS Safety Report 16882214 (Version 1)
Quarter: 2019Q4

REPORT INFORMATION
  Report Type: Spontaneous
  Country: CA (occurrence: CA)
  Receive Date: 20191003
  Receipt Date: 20191003
  Transmission Date: 20200122
  Serious: Yes (Other)
  Sender: FDA-Public Use
  Company Number: CA-TEVA-2019-CA-1116636

PATIENT
  Age: 52 Year
  Sex: Male

DRUGS (25)
  1. OXYCODONE [Interacting]
     Active Substance: OXYCODONE
     Route: 048
  2. CITALOPRAM [Interacting]
     Active Substance: CITALOPRAM HYDROBROMIDE
     Indication: PRODUCT USED FOR UNKNOWN INDICATION
     Route: 048
  3. LORAZEPAM. [Interacting]
     Active Substance: LORAZEPAM
     Route: 048
  4. MORPHINE [Interacting]
     Active Substance: MORPHINE
     Indication: PRODUCT USED FOR UNKNOWN INDICATION
     Route: 065
  5. MORPHINE [Interacting]
     Active Substance: MORPHINE
     Route: 065
  6. MORPHINE [Interacting]
     Active Substance: MORPHINE
     Route: 048
  7. MORPHINE [Interacting]
     Active Substance: MORPHINE
     Route: 065
  8. ZOPICLONE [Interacting]
     Active Substance: ZOPICLONE
     Route: 048
  9. ALTACE [Suspect]
     Active Substance: RAMIPRIL
     Indication: PRODUCT USED FOR UNKNOWN INDICATION
     Route: 065
  10. CIPRALEX [Suspect]
     Active Substance: ESCITALOPRAM OXALATE
     Indication: DEPRESSION
     Dosage: 10 MILLIGRAM DAILY;
     Route: 065
  11. CIPRALEX [Suspect]
     Active Substance: ESCITALOPRAM OXALATE
     Route: 065
  12. MORPHINE [Interacting]
     Active Substance: MORPHINE
     Route: 065
  13. MORPHINE [Interacting]
     Active Substance: MORPHINE
     Route: 065
  14. ZOPICLONE [Interacting]
     Active Substance: ZOPICLONE
     Dosage: 15 MILLIGRAM DAILY;
     Route: 048
  15. LORAZEPAM. [Suspect]
     Active Substance: LORAZEPAM
     Indication: INSOMNIA
     Route: 048
  16. OXYCODONE [Interacting]
     Active Substance: OXYCODONE
     Route: 065
  17. OXYCODONE [Interacting]
     Active Substance: OXYCODONE
     Route: 048
  18. DIAZEPAM. [Suspect]
     Active Substance: DIAZEPAM
     Indication: SPINAL STENOSIS
     Route: 048
  19. MORPHINE [Interacting]
     Active Substance: MORPHINE
     Indication: DEPRESSION
     Route: 048
  20. OXYCODONE [Interacting]
     Active Substance: OXYCODONE
     Indication: SPINAL STENOSIS
     Route: 065
  21. ZOPICLONE [Interacting]
     Active Substance: ZOPICLONE
     Indication: INSOMNIA
     Route: 065
  22. DIAZEPAM. [Suspect]
     Active Substance: DIAZEPAM
     Route: 048
  23. MORPHINE [Interacting]
     Active Substance: MORPHINE
     Indication: SPINAL STENOSIS
     Dosage: 30 MILLIGRAM DAILY;
     Route: 048
  24. OXYCODONE- ACETAMINOPHEN [Interacting]
     Active Substance: ACETAMINOPHEN\OXYCODONE HYDROCHLORIDE
     Indication: PRODUCT USED FOR UNKNOWN INDICATION
     Route: 048
  25. CIPRALEX [Suspect]
     Active Substance: ESCITALOPRAM OXALATE
     Route: 048

REACTIONS (22)
  - Heart rate decreased [Recovering/Resolving]
  - Opiates positive [Recovering/Resolving]
  - Blood pressure decreased [Recovering/Resolving]
  - Intentional overdose [Recovering/Resolving]
  - Loss of consciousness [Recovering/Resolving]
  - Blood creatinine increased [Recovering/Resolving]
  - Blood potassium increased [Recovering/Resolving]
  - Electrocardiogram QT prolonged [Recovering/Resolving]
  - Electrocardiogram abnormal [Recovering/Resolving]
  - Mechanical ventilation [Recovering/Resolving]
  - Hyperkalaemia [Recovering/Resolving]
  - Overdose [Recovering/Resolving]
  - Suicide attempt [Recovering/Resolving]
  - Bradycardia [Recovering/Resolving]
  - Drug screen positive [Recovering/Resolving]
  - Oxygen saturation decreased [Recovering/Resolving]
  - Sinus tachycardia [Recovering/Resolving]
  - Coma scale abnormal [Recovering/Resolving]
  - Hypotension [Recovering/Resolving]
  - Blood creatine phosphokinase increased [Recovering/Resolving]
  - Coma [Recovering/Resolving]
  - Drug interaction [Recovering/Resolving]
